FAERS Safety Report 4589303-8 (Version None)
Quarter: 2005Q1

REPORT INFORMATION
  Report Type: 
  Country: None (occurrence: None)
  Receive Date: 20050223
  Receipt Date: 20041126
  Transmission Date: 20050727
  Serious: Yes (Life-Threatening, Hospitalization)
  Sender: FDA-Public Use
  Company Number: 200412690DE

PATIENT
  Age: 47 Year
  Sex: Female
  Weight: 60 kg

DRUGS (3)
  1. ARAVA [Suspect]
     Indication: POLYARTHRITIS
  2. METHOTREXATE [Suspect]
     Indication: POLYARTHRITIS
  3. ETORICOXIB [Suspect]
     Indication: POLYARTHRITIS

REACTIONS (2)
  - HEPATITIS TOXIC [None]
  - TRANSAMINASES INCREASED [None]
